FAERS Safety Report 7338135-6 (Version None)
Quarter: 2011Q1

REPORT INFORMATION
  Report Type: 
  Country: None (occurrence: None)
  Receive Date: 20110308
  Receipt Date: 20110303
  Transmission Date: 20110831
  Serious: Yes (Life-Threatening, Other)
  Sender: FDA-Public Use
  Company Number: PHHY2011US17947

PATIENT
  Sex: Female

DRUGS (1)
  1. DIOVAN [Suspect]
     Indication: HYPERTENSION
     Dosage: 160 MG, QD
     Route: 048

REACTIONS (11)
  - ASTHENIA [None]
  - SUICIDAL IDEATION [None]
  - ALOPECIA [None]
  - FEELING ABNORMAL [None]
  - ABDOMINAL DISCOMFORT [None]
  - PALPITATIONS [None]
  - MUSCLE SPASMS [None]
  - ARTHRALGIA [None]
  - NAUSEA [None]
  - DIZZINESS [None]
  - NERVOUSNESS [None]
